FAERS Safety Report 6345487-2 (Version None)
Quarter: 2009Q3

REPORT INFORMATION
  Report Type: 
  Country: None (occurrence: None)
  Receive Date: 20090821
  Receipt Date: 20090529
  Transmission Date: 20100115
  Serious: No
  Sender: FDA-Public Use
  Company Number: 8047227

PATIENT
  Sex: Female
  Weight: 54.5 kg

DRUGS (4)
  1. CIMZIA [Suspect]
     Indication: CROHN'S DISEASE
     Dosage: 400 MG SC
     Route: 058
  2. PREDNISONE [Concomitant]
  3. OXYCODONE [Concomitant]
  4. NEXIUM [Concomitant]

REACTIONS (2)
  - DRUG DOSE OMISSION [None]
  - PREGNANCY [None]
